FAERS Safety Report 7485141-7 (Version None)
Quarter: 2011Q2

REPORT INFORMATION
  Report Type: 
  Country: None (occurrence: None)
  Receive Date: 20110517
  Receipt Date: 20101129
  Transmission Date: 20111010
  Serious: No
  Sender: FDA-Public Use
  Company Number: US-BAYER-2010-001794

PATIENT
  Age: 32 Year
  Sex: Male
  Weight: 240 kg

DRUGS (2)
  1. ALEVE (CAPLET) [Suspect]
     Indication: BACK PAIN
     Dosage: 5 DF, ONCE
     Route: 048
     Dates: start: 20101127
  2. ANTIHISTAMINES [Concomitant]

REACTIONS (3)
  - HYPERCHLORHYDRIA [None]
  - ABDOMINAL PAIN UPPER [None]
  - DYSPEPSIA [None]
